FAERS Safety Report 7792508-6 (Version None)
Quarter: 2011Q4

REPORT INFORMATION
  Report Type: 
  Country: None (occurrence: None)
  Receive Date: 20111003
  Receipt Date: 20110921
  Transmission Date: 20120403
  Serious: Yes (Hospitalization, Other)
  Sender: FDA-Public Use
  Company Number: GR-JNJFOC-20110805250

PATIENT
  Age: 63 Year
  Sex: Male
  Weight: 70 kg

DRUGS (6)
  1. PERINDOPRIL ERBUMINE [Concomitant]
     Indication: HYPERTENSION
     Dates: start: 20060101
  2. AMLODIPINE [Concomitant]
     Indication: HYPERTENSION
     Dates: start: 20060101
  3. AZATHIOPRINE [Concomitant]
     Dates: start: 20060101, end: 20111001
  4. MESALAMINE [Concomitant]
     Indication: COLITIS ULCERATIVE
     Dates: start: 20060101
  5. INFLIXIMAB, RECOMBINANT [Suspect]
     Indication: COLITIS ULCERATIVE
     Route: 042
     Dates: start: 20110915
  6. INFLIXIMAB, RECOMBINANT [Suspect]
     Route: 042
     Dates: start: 20100805

REACTIONS (1)
  - TRANSIENT ISCHAEMIC ATTACK [None]
